FAERS Safety Report 7451633-X (Version None)
Quarter: 2011Q2

REPORT INFORMATION
  Report Type: 
  Country: None (occurrence: None)
  Receive Date: 20110502
  Receipt Date: 20100712
  Transmission Date: 20111010
  Serious: No
  Sender: FDA-Public Use
  Company Number: US-ASTRAZENECA-2008UW24236

PATIENT
  Age: 53 Year
  Sex: Female
  Weight: 68 kg

DRUGS (3)
  1. LYRICA [Concomitant]
  2. CYMBALTA [Concomitant]
  3. NEXIUM [Suspect]
     Indication: GASTROOESOPHAGEAL REFLUX DISEASE
     Route: 048
     Dates: start: 20010101

REACTIONS (7)
  - WITHDRAWAL SYNDROME [None]
  - HYPERCHLORHYDRIA [None]
  - REFLUX OESOPHAGITIS [None]
  - OESOPHAGEAL DISORDER [None]
  - STRESS [None]
  - DRUG INEFFECTIVE [None]
  - DRUG DOSE OMISSION [None]
